FAERS Safety Report 5167188-9 (Version None)
Quarter: 2006Q4

REPORT INFORMATION
  Report Type: 
  Country: None (occurrence: None)
  Receive Date: 20061130
  Receipt Date: 20061030
  Transmission Date: 20070319
  Serious: Yes (Disabling)
  Sender: FDA-Public Use
  Company Number: 6027448

PATIENT
  Age: 47 Year
  Sex: Female

DRUGS (1)
  1. EUTHYROX (TABLET) (LEVOTHYROXINE SODIUM) [Suspect]
     Indication: THYROIDECTOMY
     Dosage: 50 UG + 25 UG (75 MCG, 1 D)
     Route: 048
     Dates: start: 19950401

REACTIONS (3)
  - FOOT FRACTURE [None]
  - HAND FRACTURE [None]
  - OSTEOPOROSIS [None]
